FAERS Safety Report 6783962-7 (Version None)
Quarter: 2010Q2

REPORT INFORMATION
  Report Type: 
  Country: None (occurrence: None)
  Receive Date: 20100622
  Receipt Date: 20090810
  Transmission Date: 20101027
  Serious: Yes (Disabling)
  Sender: FDA-Public Use
  Company Number: US-BRISTOL-MYERS SQUIBB COMPANY-14741649

PATIENT
  Age: 45 Year
  Sex: Male

DRUGS (19)
  1. CARBIDOPA + LEVODOPA [Suspect]
     Indication: PARKINSON'S DISEASE
     Dosage: 1 DF=25/100 MG TABLET(1-1/2 TAB)
     Route: 048
  2. DEPAKOTE [Concomitant]
  3. LIPITOR [Concomitant]
  4. POTASSIUM CHLORIDE [Concomitant]
  5. TRIAMTERENE AND HYDROCHLOROTHIAZIDE [Concomitant]
  6. TOPROL-XL [Concomitant]
     Dosage: TABS
  7. LASIX [Concomitant]
  8. PREVACID [Concomitant]
  9. EZETIMIBE [Concomitant]
  10. MAGNESIUM OXIDE [Concomitant]
  11. NORVASC [Concomitant]
  12. EFFEXOR [Concomitant]
  13. ENBREL [Concomitant]
  14. CLARITIN [Concomitant]
  15. DEMEROL [Concomitant]
  16. MIRALAX [Concomitant]
     Dosage: POLYETHYLENE GLYCOL 3350
  17. COMBIVENT [Concomitant]
  18. ALBUTEROL [Concomitant]
  19. DURAGESIC-100 [Concomitant]

REACTIONS (2)
  - OEDEMA PERIPHERAL [None]
  - PAIN IN EXTREMITY [None]
